FAERS Safety Report 6588838-6 (Version None)
Quarter: 2010Q1

REPORT INFORMATION
  Report Type: 
  Country: None (occurrence: None)
  Receive Date: 20100218
  Receipt Date: 20100212
  Transmission Date: 20100710
  Serious: Yes (Death)
  Sender: FDA-Public Use
  Company Number: A0844310A

PATIENT
  Age: 36 Year
  Sex: Male

DRUGS (1)
  1. ZANAMIVIR [Suspect]
     Indication: H1N1 INFLUENZA
     Route: 042
     Dates: start: 20100129, end: 20100208

REACTIONS (11)
  - BLOOD CREATININE INCREASED [None]
  - DEATH [None]
  - HAEMATOTOXICITY [None]
  - HEPATIC ENZYME INCREASED [None]
  - HEPATIC FUNCTION ABNORMAL [None]
  - HYPOTENSION [None]
  - HYPOXIA [None]
  - NERVOUS SYSTEM DISORDER [None]
  - PUPIL FIXED [None]
  - RENAL IMPAIRMENT [None]
  - THROMBOCYTOPENIA [None]
